FAERS Safety Report 8759598 (Version 1)
Quarter: 2012Q4

REPORT INFORMATION
  Report Type: Report from Study
  Country: CA (occurrence: CA)
  Receive Date: 20120829
  Receipt Date: 20120829
  Transmission Date: 20130627
  Serious: Yes (Hospitalization)
  Sender: FDA-Public Use
  Company Number: CA-JNJFOC-20120812871

PATIENT
  Sex: Male
  Weight: 75.7 kg

DRUGS (1)
  1. REMICADE [Suspect]
     Indication: COLITIS ULCERATIVE
     Dosage: 1st infusion
     Route: 042
     Dates: start: 20120727

REACTIONS (1)
  - General physical health deterioration [Unknown]
